FAERS Safety Report 9358425 (Version 1)
Quarter: 2013Q2

REPORT INFORMATION
  Report Type: Spontaneous
  Country: JP (occurrence: JP)
  Receive Date: 20130620
  Receipt Date: 20130620
  Transmission Date: 20140414
  Serious: Yes (Other)
  Sender: FDA-Public Use
  Company Number: JP-ABBOTT-13P-087-1106750-00

PATIENT
  Sex: 0

DRUGS (6)
  1. CYCLOSPORINE [Suspect]
     Indication: IMMUNOSUPPRESSION
     Route: 048
  2. METHYLPREDNISOLONE [Suspect]
     Indication: IMMUNOSUPPRESSION
     Dosage: 3 CONSECUTIVE DAYS ON WEEKS 1, 3 AND 5, THEN MONTHLY TIL 6 MONTHS
  3. METHYLPREDNISOLONE [Suspect]
     Dosage: 20 MG/BODY/D, TAPERED WEEKLY TO 4 MG/D AT WEEK 5, THEN ALTERNATE DAY ADMINISTRATION
     Route: 048
  4. MMF [Concomitant]
     Indication: PRODUCT USED FOR UNKNOWN INDICATION
  5. BASILIXIMAB [Concomitant]
     Indication: PRODUCT USED FOR UNKNOWN INDICATION
     Dosage: DAY 0 AND DAY 4
  6. PP [Concomitant]
     Indication: PRODUCT USED FOR UNKNOWN INDICATION

REACTIONS (3)
  - Focal segmental glomerulosclerosis [Unknown]
  - Nephropathy toxic [Unknown]
  - No therapeutic response [Unknown]
